FAERS Safety Report 5854809-8 (Version None)
Quarter: 2008Q3

REPORT INFORMATION
  Report Type: 
  Country: None (occurrence: None)
  Receive Date: 20080822
  Receipt Date: 20080123
  Transmission Date: 20090109
  Serious: No
  Sender: FDA-Public Use
  Company Number: US-ABBOTT-08P-163-0434929-00

PATIENT
  Sex: Female
  Weight: 49.94 kg

DRUGS (2)
  1. SYNTHROID [Suspect]
     Indication: HYPOTHYROIDISM
     Route: 048
     Dates: start: 20050101
  2. METOPROLOL SUCCINATE [Concomitant]
     Indication: HEART RATE INCREASED
     Route: 048

REACTIONS (1)
  - HEADACHE [None]
